FAERS Safety Report 8418015-5 (Version None)
Quarter: 2012Q2

REPORT INFORMATION
  Report Type: 
  Country: None (occurrence: None)
  Receive Date: 20120607
  Receipt Date: 20120528
  Transmission Date: 20120825
  Serious: Yes (Hospitalization, Other)
  Sender: FDA-Public Use
  Company Number: CA-JNJFOC-20120520127

PATIENT
  Sex: Female
  Weight: 57.7 kg

DRUGS (5)
  1. REMICADE [Suspect]
     Dosage: 4TH INFUSION
     Route: 042
     Dates: start: 20120404
  2. REMICADE [Suspect]
     Indication: COLITIS ULCERATIVE
     Route: 042
  3. MESALAMINE [Concomitant]
     Route: 065
  4. REMICADE [Suspect]
     Route: 042
     Dates: start: 20111216
  5. PREDNISONE TAB [Concomitant]
     Dosage: SMALL DOSE
     Route: 065

REACTIONS (4)
  - SEPSIS [None]
  - HEART RATE INCREASED [None]
  - PYREXIA [None]
  - COLITIS ULCERATIVE [None]
